FAERS Safety Report 20060628 (Version 4)
Quarter: 2022Q2

REPORT INFORMATION
  Report Type: Other
  Country: JP (occurrence: JP)
  Receive Date: 20211112
  Receipt Date: 20220610
  Transmission Date: 20220720
  Serious: Yes (Hospitalization, Other)
  Sender: FDA-Public Use
  Company Number: JP-CHUGAI-2021025346

PATIENT
  Age: 70 Year
  Sex: Male
  Weight: 68.4 kg

DRUGS (2)
  1. TECENTRIQ [Suspect]
     Active Substance: ATEZOLIZUMAB
     Indication: Hepatocellular carcinoma
     Route: 041
     Dates: start: 20210528
  2. AVASTIN [Suspect]
     Active Substance: BEVACIZUMAB
     Indication: Hepatocellular carcinoma
     Route: 041
     Dates: start: 20210528, end: 20211022

REACTIONS (5)
  - Gastric ulcer [Not Recovered/Not Resolved]
  - Duodenal ulcer [Not Recovered/Not Resolved]
  - Diarrhoea [Not Recovered/Not Resolved]
  - Neuropathy peripheral [Not Recovered/Not Resolved]
  - Gastrointestinal ulcer haemorrhage [Recovering/Resolving]

NARRATIVE: CASE EVENT DATE: 20211001
